FAERS Safety Report 17284616 (Version 1)
Quarter: 2020Q1

REPORT INFORMATION
  Report Type: Spontaneous
  Country: CA (occurrence: CA)
  Receive Date: 20200117
  Receipt Date: 20200117
  Transmission Date: 20200409
  Serious: Yes (Hospitalization)
  Sender: FDA-Public Use
  Company Number: CA-PFIZER INC-2020022204

PATIENT
  Age: 74 Year
  Sex: Female
  Weight: 85 kg

DRUGS (6)
  1. FERROUS FUMARATE [Concomitant]
     Active Substance: FERROUS FUMARATE
     Dosage: UNK
     Route: 065
  2. METHOTREXATE. [Concomitant]
     Active Substance: METHOTREXATE
     Dosage: UNK
     Route: 065
  3. BELIMUMAB [Suspect]
     Active Substance: BELIMUMAB
     Indication: SYSTEMIC LUPUS ERYTHEMATOSUS
     Dosage: 10 MG/KG, UNK
     Route: 042
  4. HYDROXYCHLOROQUINE [Concomitant]
     Active Substance: HYDROXYCHLOROQUINE
     Dosage: UNK
     Route: 065
  5. LYRICA [Suspect]
     Active Substance: PREGABALIN
     Dosage: UNK
     Route: 065
  6. PREDNISONE. [Concomitant]
     Active Substance: PREDNISONE
     Dosage: UNK
     Route: 065

REACTIONS (4)
  - Pain [Unknown]
  - Weight decreased [Unknown]
  - Abdominal discomfort [Unknown]
  - Insomnia [Unknown]
